FAERS Safety Report 10647697 (Version 1)
Quarter: 2014Q4

REPORT INFORMATION
  Report Type: Report from Study
  Country: IT (occurrence: IT)
  Receive Date: 20141212
  Receipt Date: 20141212
  Transmission Date: 20150529
  Serious: Yes (Hospitalization)
  Sender: FDA-Public Use
  Company Number: IT-ROCHE-1501804

PATIENT
  Age: 73 Year
  Sex: Female

DRUGS (18)
  1. CARDIOASPIRIN [Concomitant]
     Active Substance: ASPIRIN
     Dosage: 1 CP/DIE
     Route: 065
  2. DAPAROX [Concomitant]
     Active Substance: PAROXETINE HYDROCHLORIDE
     Dosage: 10 GTT/ DAY
     Route: 065
  3. LEVEMIR [Concomitant]
     Active Substance: INSULIN DETEMIR
     Dosage: 8 UI/DIE
     Route: 065
  4. CLEXANE [Concomitant]
     Active Substance: ENOXAPARIN SODIUM
     Dosage: 1 FL/DIE
     Route: 065
  5. CATAPRESAN TTS [Concomitant]
     Active Substance: CLONIDINE
     Dosage: 2 CEROTTO 1/ WEEK
     Route: 065
  6. CARBOPLATIN. [Suspect]
     Active Substance: CARBOPLATIN
     Dosage: FIFTH CYCLE
     Route: 042
     Dates: start: 20130807
  7. DEPAKIN [Concomitant]
     Active Substance: VALPROATE SODIUM
     Dosage: 2 CP/DIE?1 TABLET X 2/ DAY
     Route: 048
  8. DEPAKIN [Concomitant]
     Active Substance: VALPROATE SODIUM
     Dosage: 400MG FL 1 IN 100 CC OF SALINE GIVEN AS BOLUS IN 5 MIN
     Route: 042
  9. CARBOPLATIN. [Suspect]
     Active Substance: CARBOPLATIN
     Indication: ENDOMETRIAL ADENOCARCINOMA
     Dosage: 1 VIAL (600 MG), AUC 5
     Route: 042
     Dates: start: 20130411, end: 20130618
  10. LOPRESSOR [Concomitant]
     Active Substance: METOPROLOL TARTRATE
     Dosage: 2 CP/DIE
     Route: 065
  11. PACLITAXEL. [Suspect]
     Active Substance: PACLITAXEL
     Indication: ENDOMETRIAL ADENOCARCINOMA
     Dosage: 1 VIAL (300 MG)?175 MG/MQ
     Route: 042
     Dates: start: 20130411, end: 20130618
  12. LYRICA [Concomitant]
     Active Substance: PREGABALIN
     Dosage: 1 CP/DIE
     Route: 065
  13. BEVACIZUMAB [Suspect]
     Active Substance: BEVACIZUMAB
     Indication: ENDOMETRIAL ADENOCARCINOMA
     Dosage: 2 VIALS (400 MG)
     Route: 042
     Dates: start: 20130411
  14. BEVACIZUMAB [Suspect]
     Active Substance: BEVACIZUMAB
     Dosage: 3 VIALS (100 MG)
     Route: 042
     Dates: end: 20130618
  15. MIRTAZAPINE. [Suspect]
     Active Substance: MIRTAZAPINE
     Indication: PRODUCT USED FOR UNKNOWN INDICATION
     Route: 065
  16. PACLITAXEL. [Suspect]
     Active Substance: PACLITAXEL
     Dosage: SIXTH CYCLE
     Route: 042
     Dates: start: 20130828
  17. CARBOPLATIN. [Suspect]
     Active Substance: CARBOPLATIN
     Route: 042
     Dates: start: 20130828
  18. PACLITAXEL. [Suspect]
     Active Substance: PACLITAXEL
     Route: 042
     Dates: start: 20130807

REACTIONS (2)
  - Drug abuse [Unknown]
  - Serotonin syndrome [Unknown]

NARRATIVE: CASE EVENT DATE: 20130719
